FAERS Safety Report 8592383 (Version 2)
Quarter: 2014Q1

REPORT INFORMATION
  Report Type: Spontaneous
  Country: US (occurrence: US)
  Receive Date: 20120601
  Receipt Date: 20140226
  Transmission Date: 20141002
  Serious: No
  Sender: FDA-Public Use
  Company Number: US-ASTRAZENECA-2012SE32884

PATIENT
  Age: 65 Year
  Sex: Male

DRUGS (5)
  1. NEXIUM [Suspect]
     Route: 048
     Dates: start: 2008, end: 201401
  2. LISINOPRIL/HCTZ [Suspect]
     Dosage: 20/12.5
     Route: 048
     Dates: start: 2007
  3. MELOXICAM [Concomitant]
  4. CITALOPRAM [Concomitant]
  5. NOSE SPRAY [Concomitant]

REACTIONS (5)
  - Choking sensation [Unknown]
  - Nephrolithiasis [Unknown]
  - Gastrooesophageal reflux disease [Unknown]
  - Drug dose omission [Unknown]
  - Off label use [Unknown]
